FAERS Safety Report 4599960-8 (Version None)
Quarter: 2005Q1

REPORT INFORMATION
  Report Type: 
  Country: None (occurrence: None)
  Receive Date: 20050307
  Receipt Date: 20050301
  Transmission Date: 20050727
  Serious: Yes (Death)
  Sender: FDA-Public Use
  Company Number: GB-MERCK-0503GBR00031

PATIENT
  Age: 64 Year
  Sex: Male
  Weight: 101 kg

DRUGS (6)
  1. DOXAZOSIN MESYLATE [Concomitant]
     Indication: HYPERTENSION
     Route: 048
     Dates: start: 20041206
  2. FELODIPINE [Concomitant]
     Indication: HYPERTENSION
     Route: 048
     Dates: start: 19990510
  3. FOLIC ACID [Concomitant]
     Route: 048
     Dates: start: 20040212
  4. METHOTREXATE [Concomitant]
     Route: 048
     Dates: start: 20040212
  5. VIOXX [Suspect]
     Indication: ARTHRITIS
     Route: 048
     Dates: start: 20030403, end: 20041001
  6. CELECOXIB [Suspect]
     Indication: ARTHRITIS
     Route: 048
     Dates: start: 20041001, end: 20041223

REACTIONS (1)
  - ACUTE MYOCARDIAL INFARCTION [None]
